FAERS Safety Report 4324925-0 (Version None)
Quarter: 2004Q1

REPORT INFORMATION
  Report Type: 
  Country: None (occurrence: None)
  Receive Date: 20040323
  Receipt Date: 20040308
  Transmission Date: 20041129
  Serious: Yes (Hospitalization, Other)
  Sender: FDA-Public Use
  Company Number: 2003123666

PATIENT
  Age: 40 Year
  Sex: Female
  Weight: 44 kg

DRUGS (3)
  1. VIAGRA [Suspect]
     Indication: PULMONARY HYPERTENSION
     Dosage: 50 MG (BID), ORAL
     Route: 048
     Dates: start: 20031006
  2. EPOPROSTENOL SODIUM (EPOPROSTENOL SODIUM) [Suspect]
     Indication: PULMONARY HYPERTENSION
     Dosage: 50 MG (BID), ORAL
     Dates: start: 20030317
  3. WARFARIN SODIUM [Suspect]
     Indication: THROMBOSIS PROPHYLAXIS
     Dosage: 1.5 MG (DAILY), ORAL
     Route: 048
     Dates: start: 20021208, end: 20031208

REACTIONS (5)
  - ANAEMIA [None]
  - CONDITION AGGRAVATED [None]
  - DRUG INTERACTION [None]
  - MENORRHAGIA [None]
  - RIGHT VENTRICULAR FAILURE [None]
